FAERS Safety Report 5216138-5 (Version None)
Quarter: 2007Q1

REPORT INFORMATION
  Report Type: 
  Country: None (occurrence: None)
  Receive Date: 20070123
  Receipt Date: 20070116
  Transmission Date: 20070707
  Serious: Yes (Other)
  Sender: FDA-Public Use
  Company Number: MX-PFIZER INC-2007004520

PATIENT
  Sex: Female
  Weight: 62 kg

DRUGS (1)
  1. ATORVASTATIN CALCIUM [Suspect]
     Indication: HYPERCHOLESTEROLAEMIA
     Route: 048
     Dates: start: 20070105, end: 20070112

REACTIONS (5)
  - DIZZINESS [None]
  - HEADACHE [None]
  - RESPIRATION ABNORMAL [None]
  - SALIVA ALTERED [None]
  - SWOLLEN TONGUE [None]
